FAERS Safety Report 21466133 (Version 1)
Quarter: 2022Q4

REPORT INFORMATION
  Report Type: Spontaneous
  Country: US (occurrence: US)
  Receive Date: 20221017
  Receipt Date: 20221017
  Transmission Date: 20230113
  Serious: No
  Sender: FDA-Public Use
  Company Number: US-drreddys-SPO/USA/22/0155292

PATIENT
  Age: 52 Year
  Sex: Female

DRUGS (1)
  1. ACCUTANE [Suspect]
     Active Substance: ISOTRETINOIN
     Indication: Product used for unknown indication
     Dosage: RMA ISSUE DATE 08/26/2022 05:42:41 PM, 07/26/2022 09:29:41 AM, 06/20/2022 06:00:39 PM

REACTIONS (2)
  - Arthralgia [Unknown]
  - Treatment noncompliance [Unknown]
